FAERS Safety Report 5242582-6 (Version None)
Quarter: 2007Q1

REPORT INFORMATION
  Report Type: 
  Country: None (occurrence: None)
  Receive Date: 20070214
  Receipt Date: 20070202
  Transmission Date: 20070707
  Serious: Yes (Hospitalization)
  Sender: FDA-Public Use
  Company Number: 2007SP000111

PATIENT
  Age: 46 Year
  Sex: Female

DRUGS (3)
  1. INTRON A [Suspect]
     Indication: HEPATITIS C
     Dates: start: 19930101
  2. INTRON A [Suspect]
     Indication: HEPATITIS C
     Dates: start: 20061222
  3. ACETAMINOPHEN (CON.) [Concomitant]

REACTIONS (6)
  - ALOPECIA [None]
  - BACK PAIN [None]
  - DIABETES MELLITUS [None]
  - HYPOGLYCAEMIC SEIZURE [None]
  - RENAL FAILURE [None]
  - WEIGHT DECREASED [None]
